FAERS Safety Report 5220175-4 (Version None)
Quarter: 2007Q1

REPORT INFORMATION
  Report Type: 
  Country: None (occurrence: None)
  Receive Date: 20061201
  Receipt Date: 20060908
  Transmission Date: 20070707
  Serious: Yes (Hospitalization)
  Sender: FDA-Public Use
  Company Number: PHEH2006US11530

PATIENT
  Sex: Female

DRUGS (1)
  1. LAMISIL [Suspect]

REACTIONS (6)
  - ALOPECIA [None]
  - BLISTER [None]
  - HYPERSENSITIVITY [None]
  - SKIN DISORDER [None]
  - SKIN EXFOLIATION [None]
  - SWELLING [None]
